FAERS Safety Report 18708590 (Version 1)
Quarter: 2021Q1

REPORT INFORMATION
  Report Type: Spontaneous
  Country: GB (occurrence: GB)
  Receive Date: 20210106
  Receipt Date: 20210106
  Transmission Date: 20210419
  Serious: Yes (Other)
  Sender: FDA-Public Use
  Company Number: GB-PFIZER INC-2021004351

PATIENT
  Age: 56 Year
  Weight: 65 kg

DRUGS (11)
  1. LEVOFLOXACIN. [Concomitant]
     Active Substance: LEVOFLOXACIN
  2. DEXAMETHASONE. [Concomitant]
     Active Substance: DEXAMETHASONE
  3. FLUCONAZOLE. [Concomitant]
     Active Substance: FLUCONAZOLE
  4. LOPERAMIDE [Concomitant]
     Active Substance: LOPERAMIDE
  5. DOCETAXEL. [Suspect]
     Active Substance: DOCETAXEL
     Route: 065
  6. HERCEPTIN [Suspect]
     Active Substance: TRASTUZUMAB
     Indication: INVASIVE DUCTAL BREAST CARCINOMA
     Route: 042
     Dates: start: 20201002
  7. METOCLOPRAMIDE. [Concomitant]
     Active Substance: METOCLOPRAMIDE
  8. ZOLEDRONATE [Concomitant]
     Active Substance: ZOLEDRONIC ACID
  9. GRANISETRON [Concomitant]
     Active Substance: GRANISETRON
  10. PERTUZUMAB. [Suspect]
     Active Substance: PERTUZUMAB
     Route: 065
  11. ZARZIO [Concomitant]
     Active Substance: FILGRASTIM

REACTIONS (2)
  - Palpitations [Unknown]
  - Condition aggravated [Recovered/Resolved]
